FAERS Safety Report 8198414-X (Version None)
Quarter: 2012Q1

REPORT INFORMATION
  Report Type: 
  Country: None (occurrence: None)
  Receive Date: 20120309
  Receipt Date: 20111222
  Transmission Date: 20120608
  Serious: Yes (Other)
  Sender: FDA-Public Use
  Company Number: US-AMGEN-USASP2011065707

PATIENT
  Age: 64 Year
  Sex: Female

DRUGS (7)
  1. PREDNISONE [Concomitant]
  2. TYLENOL (CAPLET) [Concomitant]
  3. PROLIA [Suspect]
     Indication: OSTEOPOROSIS POSTMENOPAUSAL
     Dates: start: 20111115
  4. CLARITIN                           /00413701/ [Concomitant]
  5. METHOTREXATE [Concomitant]
  6. VICODIN [Concomitant]
  7. FLEXERIL [Concomitant]

REACTIONS (3)
  - BONE PAIN [None]
  - ARTHRALGIA [None]
  - BACK PAIN [None]
